FAERS Safety Report 5066939-1 (Version None)
Quarter: 2006Q3

REPORT INFORMATION
  Report Type: 
  Country: None (occurrence: None)
  Receive Date: 20060726
  Receipt Date: 20060713
  Transmission Date: 20061208
  Serious: Yes (Hospitalization, Other)
  Sender: FDA-Public Use
  Company Number: 2006077352

PATIENT
  Age: 84 Year
  Sex: Male

DRUGS (11)
  1. LYRICA [Suspect]
     Indication: NEURALGIA
     Dosage: 150 MG (75 MG, 2 IN 1 D), ORAL
     Route: 048
     Dates: start: 20060510, end: 20060601
  2. CITALOPRAM HYDROBROMIDE [Concomitant]
  3. FENTANYL [Concomitant]
  4. AMARYL [Concomitant]
  5. ASPIRIN [Concomitant]
  6. DIGITOXIN TAB [Concomitant]
  7. RAMIPRIL [Concomitant]
  8. TORSEMIDE [Concomitant]
  9. MELPRERONE (MELPERONE) [Concomitant]
  10. DIPYRONE TAB [Concomitant]
  11. PALLADONE [Concomitant]

REACTIONS (5)
  - AGITATION [None]
  - ANXIETY [None]
  - GENERAL PHYSICAL HEALTH DETERIORATION [None]
  - PSYCHOTIC DISORDER [None]
  - RESTLESSNESS [None]
